FAERS Safety Report 23179253 (Version 5)
Quarter: 2024Q4

REPORT INFORMATION
  Report Type: Spontaneous
  Country: US (occurrence: US)
  Receive Date: 20231113
  Receipt Date: 20241230
  Transmission Date: 20250114
  Serious: No
  Sender: PFIZER
  Company Number: US-PFIZER INC-PV202300181452

PATIENT
  Age: 71 Year
  Sex: Female

DRUGS (2)
  1. PALBOCICLIB [Suspect]
     Active Substance: PALBOCICLIB
     Indication: Breast cancer female
     Dosage: UNK
  2. PALBOCICLIB [Suspect]
     Active Substance: PALBOCICLIB
     Indication: Invasive lobular breast carcinoma
     Dosage: 100 MG, CYCLIC (DAILY ON DAYS 1 THROUGH 21 OF A 28 DAY TREATMENT CYCLE)
     Route: 048

REACTIONS (3)
  - Depressed mood [Unknown]
  - Insomnia [Unknown]
  - Adjustment disorder [Unknown]
